FAERS Safety Report 21439262 (Version 2)
Quarter: 2022Q4

REPORT INFORMATION
  Report Type: Spontaneous
  Country: JP (occurrence: JP)
  Receive Date: 20221011
  Receipt Date: 20221020
  Transmission Date: 20230113
  Serious: Yes (Hospitalization)
  Sender: FDA-Public Use
  Company Number: JP-MSD-2210JPN000319J

PATIENT
  Age: 8 Decade
  Sex: Male

DRUGS (4)
  1. BELSOMRA [Suspect]
     Active Substance: SUVOREXANT
     Dosage: 15 MILLIGRAM
     Route: 048
  2. BELSOMRA [Suspect]
     Active Substance: SUVOREXANT
     Dosage: 3800 MILLIGRAM
     Route: 048
  3. VALSARTAN [Concomitant]
     Active Substance: VALSARTAN
     Dosage: UNK
     Route: 065
  4. HERBAL POLLEN NOS [Concomitant]
     Dosage: 252 MILLIGRAM
     Route: 048

REACTIONS (2)
  - Sinus bradycardia [Recovering/Resolving]
  - Intentional overdose [Unknown]
